FAERS Safety Report 8513962-8 (Version None)
Quarter: 2012Q3

REPORT INFORMATION
  Report Type: 
  Country: None (occurrence: None)
  Receive Date: 20120705
  Receipt Date: 20120626
  Transmission Date: 20120928
  Serious: Yes (Hospitalization)
  Sender: FDA-Public Use
  Company Number: ACO_30906_2012

PATIENT
  Age: 83 Year
  Sex: Female

DRUGS (3)
  1. AMPYRA [Suspect]
     Indication: PROGRESSIVE RELAPSING MULTIPLE SCLEROSIS
     Dosage: SEE IMAGE
     Route: 048
     Dates: start: 20120617, end: 20120623
  2. AMPYRA [Suspect]
     Indication: PROGRESSIVE RELAPSING MULTIPLE SCLEROSIS
     Dosage: SEE IMAGE
     Route: 048
     Dates: start: 20120624
  3. AMPYRA [Suspect]
     Indication: PROGRESSIVE RELAPSING MULTIPLE SCLEROSIS
     Dosage: SEE IMAGE
     Route: 048
     Dates: start: 20120529, end: 20120530

REACTIONS (6)
  - BALANCE DISORDER [None]
  - SPEECH DISORDER [None]
  - GAIT DISTURBANCE [None]
  - MEDICATION ERROR [None]
  - CONFUSIONAL STATE [None]
  - INAPPROPRIATE SCHEDULE OF DRUG ADMINISTRATION [None]
